FAERS Safety Report 21513199 (Version 1)
Quarter: 2022Q4

REPORT INFORMATION
  Report Type: Spontaneous
  Country: US (occurrence: US)
  Receive Date: 20221027
  Receipt Date: 20221027
  Transmission Date: 20230113
  Serious: Yes (Death, Disabling, Other)
  Sender: FDA-Public Use
  Company Number: US-REGENERON PHARMACEUTICALS, INC.-2022-136951

PATIENT
  Sex: Male

DRUGS (1)
  1. EYLEA [Suspect]
     Active Substance: AFLIBERCEPT
     Indication: Eye degenerative disorder
     Dosage: INTO BOTH EYES (FORMULATION: UNKNOWN)

REACTIONS (3)
  - Cardiac disorder [Fatal]
  - Blindness [Unknown]
  - Off label use [Unknown]
